FAERS Safety Report 8882344 (Version 1)
Quarter: 2012Q4

REPORT INFORMATION
  Report Type: 
  Country: BR (occurrence: BR)
  Receive Date: 20121102
  Receipt Date: 20121102
  Transmission Date: 20130627
  Serious: Yes (Hospitalization, Other)
  Sender: FDA-Public Use
  Company Number: PHHY2012BR096534

PATIENT
  Age: 71 Year
  Sex: Female

DRUGS (2)
  1. DIOVAN AMLO FIX [Suspect]
     Indication: HYPERTENSION
     Dosage: 320/5 mg
     Route: 048
  2. MAREVAN [Suspect]
     Indication: BLOOD DISORDER

REACTIONS (3)
  - Blood disorder [Recovered/Resolved]
  - Skin discolouration [Recovered/Resolved]
  - Hypocoagulable state [Recovered/Resolved]
